FAERS Safety Report 9025004 (Version 1)
Quarter: 2013Q1

REPORT INFORMATION
  Report Type: Spontaneous
  Country: MX (occurrence: MX)
  Receive Date: 20130121
  Receipt Date: 20130121
  Transmission Date: 20140127
  Serious: Yes (Other)
  Sender: FDA-Public Use
  Company Number: PHHY2013MX004201

PATIENT
  Age: 50 Year
  Sex: Male

DRUGS (4)
  1. AFINITOR [Suspect]
     Indication: CARCINOID SYNDROME
     Dosage: 10 MG, DAILY
     Dates: start: 20121101
  2. SANDOSTATIN LAR [Suspect]
     Indication: CARCINOID SYNDROME
     Dosage: 30 MG, EVERY 28 DAYS
     Dates: start: 20120915
  3. CARBOPLATIN [Concomitant]
     Indication: NEUROENDOCRINE TUMOUR
     Route: 042
     Dates: start: 20130103
  4. ETOPOSIDE [Concomitant]
     Indication: NEUROENDOCRINE TUMOUR
     Route: 042
     Dates: start: 20130103

REACTIONS (13)
  - Neuroendocrine tumour [Unknown]
  - Metastases to liver [Unknown]
  - Malignant neoplasm progression [Unknown]
  - Liver disorder [Unknown]
  - Rectal haemorrhage [Unknown]
  - Mucosal inflammation [Unknown]
  - Haemorrhoids [Unknown]
  - Nasal dryness [Unknown]
  - Rectal lesion [Unknown]
  - Mucosal hyperaemia [Unknown]
  - Gingival bleeding [Recovered/Resolved]
  - Epistaxis [Unknown]
  - Dysgeusia [Unknown]
